FAERS Safety Report 9340558 (Version 1)
Quarter: 2013Q2

REPORT INFORMATION
  Report Type: Spontaneous
  Country: CH (occurrence: CH)
  Receive Date: 20130610
  Receipt Date: 20130610
  Transmission Date: 20140414
  Serious: Yes (Other)
  Sender: FDA-Public Use
  Company Number: PHHY2013CH057628

PATIENT
  Age: 35 Year
  Sex: Male
  Weight: 64 kg

DRUGS (2)
  1. OMEPRAZOL [Suspect]
     Dosage: 40 MG, ONCE/SINGLE
     Route: 042
     Dates: start: 20121218
  2. OMEPRAZOL [Suspect]
     Dosage: 2 MG/ML, DRINKABLE OMEPRAZOLE SUSPENSION
     Dates: start: 20121219

REACTIONS (1)
  - Drug administration error [Recovered/Resolved]
